FAERS Safety Report 21557666 (Version 6)
Quarter: 2023Q4

REPORT INFORMATION
  Report Type: Spontaneous
  Country: PL (occurrence: PL)
  Receive Date: 20221106
  Receipt Date: 20231130
  Transmission Date: 20240110
  Serious: Yes (Hospitalization, Other)
  Sender: FDA-Public Use
  Company Number: PL-MYLANLABS-2022M1116057

PATIENT
  Age: 43 Year
  Sex: Male

DRUGS (48)
  1. PREZISTA [Suspect]
     Active Substance: DARUNAVIR ETHANOLATE
     Indication: Acquired immunodeficiency syndrome
     Dosage: 600 MILLIGRAM, BID
     Route: 048
  2. PREZISTA [Suspect]
     Active Substance: DARUNAVIR ETHANOLATE
     Indication: HIV infection
  3. EFAVIRENZ [Suspect]
     Active Substance: EFAVIRENZ
     Indication: Acquired immunodeficiency syndrome
     Dosage: 800 MILLIGRAM, QD
     Route: 048
     Dates: start: 2011
  4. RITONAVIR [Suspect]
     Active Substance: RITONAVIR
     Indication: HIV infection
     Dosage: 100 MILLIGRAM, BID
     Route: 048
  5. RALTEGRAVIR [Suspect]
     Active Substance: RALTEGRAVIR
     Indication: Acquired immunodeficiency syndrome
     Dosage: 400 MILLIGRAM, BID
     Route: 065
     Dates: start: 201112
  6. TRUVADA [Suspect]
     Active Substance: EMTRICITABINE\TENOFOVIR DISOPROXIL FUMARATE
     Indication: Acquired immunodeficiency syndrome
     Dosage: 1 DOSAGE FORM, QD
     Route: 048
     Dates: start: 2011
  7. KIVEXA [Suspect]
     Active Substance: ABACAVIR SULFATE\LAMIVUDINE
     Indication: Acquired immunodeficiency syndrome
     Dosage: UNK UNK, QD
     Route: 048
     Dates: start: 201112
  8. KIVEXA [Suspect]
     Active Substance: ABACAVIR SULFATE\LAMIVUDINE
     Dosage: UNK UNK, QD
     Route: 065
  9. KALETRA [Suspect]
     Active Substance: LOPINAVIR\RITONAVIR
     Indication: Acquired immunodeficiency syndrome
     Dosage: UNK UNK, BID; TWO TABLETS
     Route: 048
  10. COTRIMOXAZOLE [Suspect]
     Active Substance: SULFAMETHOXAZOLE\TRIMETHOPRIM
     Indication: Antifungal prophylaxis
     Dosage: 960 MILLIGRAM; EVERY OTHER DAY
     Route: 048
  11. MEROPENEM [Suspect]
     Active Substance: MEROPENEM
     Indication: Enterobacter infection
     Dosage: 2000 MILLIGRAM, QD; INTRAVENOUS (NOT SPECIFIED)
     Route: 048
  12. MEROPENEM [Suspect]
     Active Substance: MEROPENEM
     Indication: Urinary tract infection
     Dosage: 500 MG
     Route: 042
  13. CLARITHROMYCIN [Suspect]
     Active Substance: CLARITHROMYCIN
     Indication: Tuberculosis
     Dosage: 500 MILLIGRAM, BID
     Route: 048
  14. CLARITHROMYCIN [Suspect]
     Active Substance: CLARITHROMYCIN
     Indication: Tuberculosis
     Dosage: 500 MILLIGRAM, BID
     Route: 048
  15. CLARITHROMYCIN [Suspect]
     Active Substance: CLARITHROMYCIN
     Dosage: 250 MILLIGRAM
     Route: 048
  16. CLARITHROMYCIN [Suspect]
     Active Substance: CLARITHROMYCIN
     Dosage: 960 MG, QOD
     Route: 065
  17. CLINDAMYCIN [Suspect]
     Active Substance: CLINDAMYCIN
     Indication: Toxoplasmosis
     Dosage: 600 MILLIGRAM, TID; THREE TIMES A DAY
     Route: 048
  18. CLINDAMYCIN [Suspect]
     Active Substance: CLINDAMYCIN
     Indication: Evidence based treatment
  19. ISONIAZID [Suspect]
     Active Substance: ISONIAZID
     Indication: Tuberculosis
     Route: 042
     Dates: start: 201104
  20. STREPTOMYCIN [Suspect]
     Active Substance: STREPTOMYCIN SULFATE
     Indication: Tuberculosis
     Route: 048
  21. LEVOFLOXACIN [Suspect]
     Active Substance: LEVOFLOXACIN
     Indication: Tuberculosis
     Route: 048
  22. LEVOFLOXACIN [Suspect]
     Active Substance: LEVOFLOXACIN
     Route: 048
  23. ERTAPENEM [Suspect]
     Active Substance: ERTAPENEM
     Indication: Urinary tract infection
     Dosage: 1000 MILLIGRAM, QD
     Route: 048
  24. ERTAPENEM [Suspect]
     Active Substance: ERTAPENEM
     Indication: Enterobacter infection
  25. PYRAZINAMIDE [Suspect]
     Active Substance: PYRAZINAMIDE
     Indication: Tuberculosis
     Route: 048
     Dates: start: 201104
  26. FLUCONAZOLE [Suspect]
     Active Substance: FLUCONAZOLE
     Indication: Candida infection
     Route: 048
  27. FLUCONAZOLE [Suspect]
     Active Substance: FLUCONAZOLE
     Indication: Candida infection
     Dosage: 100 MILLIGRAM, BID
     Route: 048
  28. FLUCONAZOLE [Suspect]
     Active Substance: FLUCONAZOLE
     Indication: Candida infection
     Route: 048
  29. FLUCONAZOLE [Suspect]
     Active Substance: FLUCONAZOLE
     Indication: Candida infection
     Route: 048
  30. EFAVIRENZ [Suspect]
     Active Substance: EFAVIRENZ
     Indication: Product used for unknown indication
     Route: 048
  31. CLOFAZIMINE [Suspect]
     Active Substance: CLOFAZIMINE
     Indication: Tuberculosis
     Dosage: 100 MILLIGRAM, BID
     Route: 048
  32. RIFAMPIN [Suspect]
     Active Substance: RIFAMPIN
     Indication: Tuberculosis
     Route: 048
     Dates: start: 201104
  33. ETHIONAMIDE [Suspect]
     Active Substance: ETHIONAMIDE
     Indication: Tuberculosis
     Dosage: 750 MILLIGRAM, BID
     Route: 048
  34. FOSFOMYCIN [Suspect]
     Active Substance: FOSFOMYCIN
     Indication: Enterobacter infection
     Dosage: UNK; INTERMITTENTLY
     Route: 067
  35. FOSFOMYCIN [Suspect]
     Active Substance: FOSFOMYCIN
     Indication: Urinary tract infection
  36. ABACAVIR\LAMIVUDINE [Suspect]
     Active Substance: ABACAVIR\LAMIVUDINE
     Indication: HIV infection
     Route: 042
  37. ABACAVIR\LAMIVUDINE [Suspect]
     Active Substance: ABACAVIR\LAMIVUDINE
     Dosage: UNK (ONCE A DAY)
     Route: 065
     Dates: start: 201112
  38. LOPINAVIR [Suspect]
     Active Substance: LOPINAVIR
     Indication: HIV infection
     Dosage: 2 DF, BID
     Route: 065
  39. VORICONAZOLE [Concomitant]
     Active Substance: VORICONAZOLE
     Indication: Candida infection
     Dosage: 0.2 GRAM, BID
     Route: 042
  40. VORICONAZOLE [Concomitant]
     Active Substance: VORICONAZOLE
     Indication: Candida infection
     Dosage: 0.4 GRAM, BID
     Route: 048
  41. VORICONAZOLE [Concomitant]
     Active Substance: VORICONAZOLE
     Indication: Candida infection
  42. GANCICLOVIR [Concomitant]
     Active Substance: GANCICLOVIR
     Indication: Cytomegalovirus chorioretinitis
     Dosage: 250 MILLIGRAM, BID; INTRAVENOUS (NOT SPECIFIED)
     Route: 042
  43. PYRIMETHAMINE [Concomitant]
     Active Substance: PYRIMETHAMINE
     Indication: Evidence based treatment
     Dosage: 50 MILLIGRAM, QD
     Route: 048
  44. LEVOFLOXACIN [Concomitant]
     Active Substance: LEVOFLOXACIN
     Indication: Pulmonary tuberculosis
     Dosage: 500 MILLIGRAM, BID
     Route: 048
  45. OSELTAMIVIR [Concomitant]
     Active Substance: OSELTAMIVIR
     Indication: H1N1 influenza
     Dosage: UNK; 2 X 75 MG
     Route: 042
  46. EFAVIRENZ [Concomitant]
     Active Substance: EFAVIRENZ
     Indication: Product used for unknown indication
     Dosage: UNK
     Route: 065
  47. ETHAMBUTOL [Concomitant]
     Active Substance: ETHAMBUTOL HYDROCHLORIDE
     Indication: Tuberculosis
     Dosage: UNK
     Route: 065
     Dates: start: 201104
  48. ALBUMIN HUMAN [Concomitant]
     Active Substance: ALBUMIN HUMAN
     Indication: Product used for unknown indication
     Dosage: UNK
     Route: 065

REACTIONS (19)
  - Myalgia [Unknown]
  - Neuropsychological symptoms [Unknown]
  - Mental disorder [Unknown]
  - Blood bilirubin increased [Unknown]
  - Myalgia [Unknown]
  - Nausea [Unknown]
  - Diarrhoea [Unknown]
  - Urinary tract infection [Unknown]
  - Clostridium difficile colitis [Unknown]
  - Neutropenia [Unknown]
  - Pathogen resistance [Unknown]
  - Pancreatitis [Unknown]
  - Lymphopenia [Unknown]
  - Drug resistance [Unknown]
  - Urinary tract inflammation [Unknown]
  - Clostridium difficile colitis [Unknown]
  - Diarrhoea [Unknown]
  - Conductive deafness [Unknown]
  - Hepatitis cholestatic [Unknown]

NARRATIVE: CASE EVENT DATE: 20120101
